FAERS Safety Report 24027653 (Version 1)
Quarter: 2024Q2

REPORT INFORMATION
  Report Type: Spontaneous
  Country: US (occurrence: US)
  Receive Date: 20240628
  Receipt Date: 20240628
  Transmission Date: 20240715
  Serious: Yes (Other)
  Sender: FDA-Public Use
  Company Number: US-ENDO USA, INC.-2024-002031

PATIENT

DRUGS (1)
  1. EVEROLIMUS [Suspect]
     Active Substance: EVEROLIMUS
     Indication: Product used for unknown indication
     Dosage: 5 MILLIGRAM, UNKNOWN
     Route: 065

REACTIONS (2)
  - Seizure [Recovered/Resolved]
  - Product substitution issue [Recovered/Resolved]
